FAERS Safety Report 10306761 (Version 1)
Quarter: 2014Q3

REPORT INFORMATION
  Report Type: Spontaneous
  Country: US (occurrence: US)
  Receive Date: 20140715
  Receipt Date: 20140715
  Transmission Date: 20150326
  Serious: No
  Sender: FDA-Public Use
  Company Number: US-009507513-1407USA006618

PATIENT
  Sex: Female

DRUGS (3)
  1. BENADRYL [Concomitant]
     Active Substance: DIPHENHYDRAMINE HYDROCHLORIDE
  2. NASONEX [Suspect]
     Active Substance: MOMETASONE FUROATE
     Indication: PNEUMOTHORAX
     Dosage: 2 SPRAYS ONCE DAILY
     Route: 045
     Dates: start: 2013
  3. CLARITIN [Concomitant]
     Active Substance: LORATADINE

REACTIONS (4)
  - Medication error [Unknown]
  - Product quality issue [Unknown]
  - Dysphonia [Unknown]
  - Drug dose omission [Unknown]
